FAERS Safety Report 8161439-4 (Version None)
Quarter: 2012Q1

REPORT INFORMATION
  Report Type: 
  Country: None (occurrence: None)
  Receive Date: 20120224
  Receipt Date: 20120215
  Transmission Date: 20120608
  Serious: Yes (Hospitalization)
  Sender: FDA-Public Use
  Company Number: US-BAYER-2011-041382

PATIENT
  Age: 19 Year
  Sex: Female
  Weight: 49.887 kg

DRUGS (12)
  1. LUVOX [Concomitant]
     Dosage: 50 MG, QD
     Route: 048
  2. TRAZODONE HCL [Concomitant]
     Dosage: UNK
  3. TORADOL [Concomitant]
     Indication: MUSCLE STRAIN
     Route: 042
  4. ZOLOFT [Concomitant]
     Dosage: 100 MG, UNK
     Route: 048
     Dates: start: 20100616
  5. METRONIDAZOLE [Concomitant]
     Dosage: 250 MG, UNK
     Route: 048
     Dates: start: 20100616
  6. YAZ [Suspect]
     Indication: ACNE
  7. ULTRAM [Concomitant]
     Dosage: 50 MG, UNK
     Route: 048
  8. LEXAPRO [Concomitant]
  9. YAZ [Suspect]
     Indication: CONTRACEPTION
     Dosage: UNK
     Route: 048
     Dates: start: 20080301, end: 20100801
  10. MOTRIN [Concomitant]
     Dosage: UNK
     Route: 048
  11. CLONAZEPAM [Concomitant]
     Dosage: 0.5 MG, UNK
     Route: 048
     Dates: start: 20100628
  12. FLUVOXAMINE MALEATE [Concomitant]

REACTIONS (5)
  - TRICHOTILLOMANIA [None]
  - PULMONARY EMBOLISM [None]
  - DEPRESSION [None]
  - ANXIETY [None]
  - CHEST PAIN [None]
